FAERS Safety Report 4473726-1 (Version None)
Quarter: 2004Q3

REPORT INFORMATION
  Report Type: 
  Country: None (occurrence: None)
  Receive Date: 20040917
  Receipt Date: 20040802
  Transmission Date: 20050211
  Serious: Yes (Life-Threatening, Other)
  Sender: FDA-Public Use
  Company Number: US-JNJFOC-20040600279

PATIENT
  Age: 22 Year
  Sex: Female
  Weight: 70.7611 kg

DRUGS (2)
  1. ORTHO EVRA [Suspect]
     Indication: CONTRACEPTION
     Dosage: SEE IMAGE
     Route: 062
     Dates: start: 20031201, end: 20040213
  2. PERCOCET [Concomitant]

REACTIONS (8)
  - ABDOMINAL DISTENSION [None]
  - BREAST TENDERNESS [None]
  - DRUG EXPOSURE DURING PREGNANCY [None]
  - HUNGER [None]
  - NAUSEA [None]
  - UNINTENDED PREGNANCY [None]
  - VAGINAL CANDIDIASIS [None]
  - WEIGHT INCREASED [None]
